FAERS Safety Report 17307899 (Version 5)
Quarter: 2022Q1

REPORT INFORMATION
  Report Type: Report from Study
  Country: US (occurrence: US)
  Receive Date: 20200123
  Receipt Date: 20220329
  Transmission Date: 20220424
  Serious: Yes (Life-Threatening, Hospitalization)
  Sender: FDA-Public Use
  Company Number: NVSC2019US086651

PATIENT
  Age: 3 Year
  Sex: Male

DRUGS (24)
  1. RUXOLITINIB [Suspect]
     Active Substance: RUXOLITINIB
     Indication: Acute lymphocytic leukaemia
     Dosage: NO TREATMENT
     Route: 065
  2. RUXOLITINIB [Suspect]
     Active Substance: RUXOLITINIB
     Dosage: 35 MG, BID (DAYS 1 TO 14 AND 29 TO 42)
     Route: 048
     Dates: start: 20190821, end: 20191205
  3. RUXOLITINIB [Suspect]
     Active Substance: RUXOLITINIB
     Dosage: 35 MG, BID (DAYS 1 TO 10, 21 TO 30 AND 41 TO 50)
     Route: 048
     Dates: start: 20191127, end: 20191206
  4. RUXOLITINIB [Suspect]
     Active Substance: RUXOLITINIB
     Dosage: 35 MG, BID (1 TO 10, 21 TO 30 AND 41 TO 50)
     Route: 048
     Dates: start: 20191220
  5. METHOTREXATE SODIUM [Suspect]
     Active Substance: METHOTREXATE SODIUM
     Indication: Acute lymphocytic leukaemia
     Dosage: NO TREATMENT
     Route: 065
  6. METHOTREXATE SODIUM [Suspect]
     Active Substance: METHOTREXATE SODIUM
     Dosage: 12 MG ONE TIME (DAYS 1, 29, AND 36)
     Route: 037
     Dates: start: 20190821
  7. METHOTREXATE SODIUM [Suspect]
     Active Substance: METHOTREXATE SODIUM
     Dosage: 12 MILLIGRAM, ONE TIME ON DAYS 1 AND 31, STARTING DOSE 100 MG/M2 AND ESCALATE
     Route: 042
     Dates: start: 20191107, end: 20191206
  8. METHOTREXATE SODIUM [Suspect]
     Active Substance: METHOTREXATE SODIUM
     Dosage: 12 MILLIGRAM, ONE TIME ON DAYS 1 AND 31STARTING DOSE 100 MG/M2 AND ESCALATE
     Route: 042
     Dates: start: 20191211
  9. VINCRISTINE [Suspect]
     Active Substance: VINCRISTINE
     Indication: Acute lymphocytic leukaemia
     Dosage: NO TREATMENT
     Route: 065
  10. VINCRISTINE [Suspect]
     Active Substance: VINCRISTINE
     Dosage: 1.14 MG ONE TIME (DAYS 43 AND 50)
     Route: 042
     Dates: start: 20190821
  11. VINCRISTINE [Suspect]
     Active Substance: VINCRISTINE
     Dosage: 1.14 MG, ONE TIME (DAYS 1, 11, 21, 31 AND 41)
     Route: 048
     Dates: start: 20191107, end: 20191206
  12. VINCRISTINE [Suspect]
     Active Substance: VINCRISTINE
     Dosage: 1.14 MG, ONE TIME (DAYS 1, 11, 21, 31 AND 41)
     Route: 042
     Dates: start: 20191211
  13. CYCLOPHOSPHAMIDE [Suspect]
     Active Substance: CYCLOPHOSPHAMIDE
     Indication: Acute lymphocytic leukaemia
     Dosage: NO TREATMENT
     Route: 065
  14. CYCLOPHOSPHAMIDE [Suspect]
     Active Substance: CYCLOPHOSPHAMIDE
     Dosage: 760 MG, ONCE
     Route: 042
     Dates: start: 20190924
  15. CYTARABINE [Suspect]
     Active Substance: CYTARABINE
     Indication: Acute lymphocytic leukaemia
     Dosage: NO TREATMENT
     Route: 065
  16. CYTARABINE [Suspect]
     Active Substance: CYTARABINE
     Dosage: 57 MG (DAYS 29 TO 32 AND 36 TO 39)
     Route: 042
     Dates: start: 20190924
  17. THIOGUANINE [Suspect]
     Active Substance: THIOGUANINE
     Indication: Acute lymphocytic leukaemia
     Dosage: NO TREATMENT
     Route: 065
  18. THIOGUANINE [Suspect]
     Active Substance: THIOGUANINE
     Dosage: 45 MG (DAYS 29 TO 42)
     Route: 048
     Dates: start: 20190924
  19. ASPARAGINASE ERWINIA CHRYSANTHEMI [Suspect]
     Active Substance: ASPARAGINASE ERWINIA CHRYSANTHEMI
     Indication: Acute lymphocytic leukaemia
     Dosage: NO TREATMENT
     Route: 065
  20. ASPARAGINASE ERWINIA CHRYSANTHEMI [Suspect]
     Active Substance: ASPARAGINASE ERWINIA CHRYSANTHEMI
     Dosage: 19000 IU THREE TIMES PER WEEK X2 WEEKS
     Route: 030
     Dates: start: 20190827
  21. ASPARAGINASE ERWINIA CHRYSANTHEMI [Suspect]
     Active Substance: ASPARAGINASE ERWINIA CHRYSANTHEMI
     Dosage: 19000 IU, DAYS 2 AND 22 PER PROTOCOL THREE TIMES PER WEEK X2 WEEKS FOR EACH DOSE
     Route: 030
     Dates: start: 20191108
  22. LORAZEPAM [Concomitant]
     Active Substance: LORAZEPAM
     Indication: Product used for unknown indication
     Dosage: 0.25 MILLIGRAM, 1 TIME
     Route: 042
     Dates: start: 20191209, end: 20191209
  23. BACTRIM [Concomitant]
     Active Substance: SULFAMETHOXAZOLE\TRIMETHOPRIM
     Indication: Product used for unknown indication
     Dosage: 80 MILLIGRAM MON/WED/FRI
     Route: 048
     Dates: start: 20191209
  24. CYPROHEPTADINE [Concomitant]
     Active Substance: CYPROHEPTADINE
     Indication: Product used for unknown indication
     Dosage: 2 MG, TID
     Route: 048
     Dates: start: 20191209

REACTIONS (9)
  - Stomatitis [Recovered/Resolved]
  - Dehydration [Recovered/Resolved]
  - Dehydration [Recovered/Resolved]
  - Constipation [Recovered/Resolved]
  - Decreased appetite [Recovering/Resolving]
  - Lethargy [Recovered/Resolved]
  - Abdominal pain [Recovered/Resolved]
  - Vomiting [Recovered/Resolved]
  - Hypoglycaemia [Recovered/Resolved]

NARRATIVE: CASE EVENT DATE: 20191015
